FAERS Safety Report 11414483 (Version 1)
Quarter: 2015Q3

REPORT INFORMATION
  Report Type: Spontaneous
  Country: US (occurrence: None)
  Receive Date: 20150824
  Receipt Date: 20150824
  Transmission Date: 20151125
  Serious: Yes (Hospitalization)
  Sender: FDA-Public Use
  Company Number: None

PATIENT
  Age: 55 Year
  Sex: Male
  Weight: 56.7 kg

DRUGS (2)
  1. SUNITINIB MALATE (SU011248 L-MALATE) [Suspect]
     Active Substance: SUNITINIB MALATE
     Dates: end: 20150805
  2. GEMCITABINE HYDROCHLORIDE. [Suspect]
     Active Substance: GEMCITABINE HYDROCHLORIDE
     Dates: end: 20150805

REACTIONS (3)
  - Dyspnoea [None]
  - Disease progression [None]
  - Aspiration pleural cavity [None]

NARRATIVE: CASE EVENT DATE: 20150819
